FAERS Safety Report 22066449 (Version 2)
Quarter: 2024Q1

REPORT INFORMATION
  Report Type: Spontaneous
  Country: US (occurrence: US)
  Receive Date: 20230306
  Receipt Date: 20240222
  Transmission Date: 20240409
  Serious: Yes (Death, Other)
  Sender: FDA-Public Use
  Company Number: US-Stemline Therapeutics, Inc.-2023ST000163

PATIENT
  Age: 81 Year
  Sex: Female
  Weight: 52.21 kg

DRUGS (7)
  1. ORSERDU [Suspect]
     Active Substance: ELACESTRANT
     Indication: Breast cancer
     Route: 048
     Dates: start: 20230210, end: 20230214
  2. CALCIUM [Concomitant]
     Active Substance: CALCIUM
     Indication: Bone density decreased
  3. FUROSEMIDE [Concomitant]
     Active Substance: FUROSEMIDE
     Indication: Diuretic therapy
  4. KLOR-CON [Concomitant]
     Active Substance: POTASSIUM CHLORIDE
     Indication: Blood potassium decreased
  5. SPIRONOLACTONE [Concomitant]
     Active Substance: SPIRONOLACTONE
     Indication: Diuretic therapy
  6. VITAMIN B12 [Concomitant]
     Active Substance: CYANOCOBALAMIN
     Indication: Red blood cell count decreased
  7. XGEVA [Concomitant]
     Active Substance: DENOSUMAB
     Indication: Bone density decreased

REACTIONS (3)
  - Death [Fatal]
  - Weight decreased [Unknown]
  - Product size issue [Unknown]

NARRATIVE: CASE EVENT DATE: 20230201
